FAERS Safety Report 6762224-8 (Version None)
Quarter: 2010Q2

REPORT INFORMATION
  Report Type: 
  Country: None (occurrence: None)
  Receive Date: 20100609
  Receipt Date: 20100527
  Transmission Date: 20101027
  Serious: Yes (Other)
  Sender: FDA-Public Use
  Company Number: PHHY2010US31327

PATIENT
  Sex: Male

DRUGS (6)
  1. TEGRETOL-XR [Suspect]
     Dosage: UNK
     Dates: start: 20080301, end: 20100301
  2. CARBAMAZEPINE [Suspect]
  3. ZONEGRAN [Suspect]
     Dosage: UNK
  4. LYRICA [Suspect]
  5. BENICAR HCT [Concomitant]
  6. CRESTOR [Concomitant]

REACTIONS (8)
  - BLOOD TRIGLYCERIDES INCREASED [None]
  - CONVULSION [None]
  - COORDINATION ABNORMAL [None]
  - DIZZINESS [None]
  - DRUG LEVEL INCREASED [None]
  - GAIT DISTURBANCE [None]
  - NAUSEA [None]
  - SKELETAL INJURY [None]
